FAERS Safety Report 7088613-2 (Version None)
Quarter: 2010Q4

REPORT INFORMATION
  Report Type: 
  Country: None (occurrence: None)
  Receive Date: 20101029
  Receipt Date: 20101015
  Transmission Date: 20110411
  Serious: Yes (Death, Hospitalization)
  Sender: FDA-Public Use
  Company Number: 2010000986

PATIENT
  Sex: Male
  Weight: 82.5547 kg

DRUGS (20)
  1. ERLOTINIB HYDROCHLORIDE [Suspect]
     Indication: NON-SMALL CELL LUNG CANCER
     Dosage: (150 MG, QD), ORAL
     Route: 048
     Dates: start: 20090121
  2. ADVAIR DISKUS (SERETIDE MITE) [Concomitant]
  3. ASTELIN [Concomitant]
  4. CAPTOPRIL [Concomitant]
  5. CARVEDILOL [Concomitant]
  6. CENTRUM SILVER (CENTRUM SILVER) [Concomitant]
  7. DOXYCYCLINE MONOHYDRATE (DOXYCYCLINE MONOHYDRATE) [Concomitant]
  8. ASPIRIN [Concomitant]
  9. FAMOTIDINE [Concomitant]
  10. FERROUS SULFATE TAB [Concomitant]
  11. HYDROCODONE BIT/ACETAMINOPHEN (VICODIN) [Concomitant]
  12. IPRATROPIUM BROMIDE [Concomitant]
  13. ISOSORBIDE MONONITRATE [Concomitant]
  14. KRISTALOSE [Concomitant]
  15. LIPITOR [Concomitant]
  16. LOVAZA [Concomitant]
  17. MEGACE [Concomitant]
  18. NITROGLYCERIN [Concomitant]
  19. SPIRONOLACTONE [Concomitant]
  20. TERAZOSIN HCL [Concomitant]

REACTIONS (5)
  - ASTHENIA [None]
  - CARDIO-RESPIRATORY ARREST [None]
  - FALL [None]
  - SPINAL COMPRESSION FRACTURE [None]
  - URINARY TRACT INFECTION [None]
